FAERS Safety Report 4536928-1 (Version None)
Quarter: 2004Q4

REPORT INFORMATION
  Report Type: 
  Country: None (occurrence: None)
  Receive Date: 20041220
  Receipt Date: 20041210
  Transmission Date: 20050328
  Serious: Yes (Other)
  Sender: FDA-Public Use
  Company Number: 2004-11-0465

PATIENT
  Age: 54 Year
  Sex: Male

DRUGS (3)
  1. PEG-INTRON [Suspect]
     Indication: HEPATITIS C
     Dosage: SEE IMAGE
     Route: 058
     Dates: start: 20040827, end: 20041101
  2. PEG-INTRON [Suspect]
     Indication: HEPATITIS C
     Dosage: SEE IMAGE
     Route: 058
     Dates: start: 20041111
  3. REBETOL [Suspect]
     Indication: HEPATITIS C
     Dosage: 1200 MG QD ORAL
     Route: 048
     Dates: start: 20040827

REACTIONS (5)
  - ASTIGMATISM [None]
  - PRESBYOPIA [None]
  - RETINAL DETACHMENT [None]
  - RETINAL HAEMORRHAGE [None]
  - VITREOUS DETACHMENT [None]
